FAERS Safety Report 19103523 (Version 3)
Quarter: 2021Q3

REPORT INFORMATION
  Report Type: Spontaneous
  Country: US (occurrence: US)
  Receive Date: 20210407
  Receipt Date: 20210716
  Transmission Date: 20211014
  Serious: Yes (Other)
  Sender: FDA-Public Use
  Company Number: US-PFIZER INC-2021364464

PATIENT
  Age: 56 Year
  Sex: Female

DRUGS (3)
  1. COVID?19 VACCINE [Concomitant]
     Indication: COVID-19 IMMUNISATION
     Dosage: SINGLE DOSE
     Dates: start: 20210331, end: 20210331
  2. XELJANZ [Suspect]
     Active Substance: TOFACITINIB CITRATE
     Indication: PSORIATIC ARTHROPATHY
     Dosage: 5 MG, TWICE A DAY
     Route: 048
     Dates: start: 20210323
  3. COVID?19 VACCINE [Concomitant]
     Dosage: SINGLE DOSE
     Dates: start: 20210421, end: 20210421

REACTIONS (7)
  - Rheumatoid arthritis [Unknown]
  - Blood cholesterol increased [Unknown]
  - Disease recurrence [Unknown]
  - Therapeutic response unexpected [Unknown]
  - Osteoarthritis [Unknown]
  - Asthma [Unknown]
  - Weight decreased [Unknown]

NARRATIVE: CASE EVENT DATE: 202103
